FAERS Safety Report 25727811 (Version 1)
Quarter: 2025Q3

REPORT INFORMATION
  Report Type: Spontaneous
  Country: US (occurrence: None)
  Receive Date: 20250826
  Receipt Date: 20250826
  Transmission Date: 20251021
  Serious: Yes (Life-Threatening)
  Sender: FDA-CTU
  Company Number: None

PATIENT
  Sex: Male

DRUGS (2)
  1. WARFARIN [Suspect]
     Active Substance: WARFARIN
  2. AMOXICILLIN\CLAVULANIC ACID [Suspect]
     Active Substance: AMOXICILLIN\CLAVULANIC ACID

REACTIONS (6)
  - Arthralgia [None]
  - Contusion [None]
  - Swelling [None]
  - Fall [None]
  - Anticoagulation drug level above therapeutic [None]
  - Haemorrhage [None]

NARRATIVE: CASE EVENT DATE: 20240114
